FAERS Safety Report 6979597-3 (Version None)
Quarter: 2010Q3

REPORT INFORMATION
  Report Type: 
  Country: None (occurrence: None)
  Receive Date: 20100910
  Receipt Date: 20100910
  Transmission Date: 20110219
  Serious: Yes (Hospitalization)
  Sender: FDA-Public Use
  Company Number: None

PATIENT
  Sex: Female
  Weight: 59.09 kg

DRUGS (3)
  1. FLUOROURACIL [Suspect]
     Dosage: 18704 MG
     Dates: end: 20100824
  2. BEVACIZUMAB (RHUMAB VEGF) [Suspect]
     Dosage: 1180 MG
     Dates: end: 20100824
  3. CAMPTOSAR [Suspect]
     Dosage: 1204 MG
     Dates: end: 20100824

REACTIONS (4)
  - ASTHENIA [None]
  - DEHYDRATION [None]
  - DIARRHOEA [None]
  - HYPOKALAEMIA [None]
